FAERS Safety Report 7971822-5 (Version None)
Quarter: 2011Q4

REPORT INFORMATION
  Report Type: 
  Country: None (occurrence: None)
  Receive Date: 20111212
  Receipt Date: 20111129
  Transmission Date: 20120403
  Serious: Yes (Hospitalization, Other)
  Sender: FDA-Public Use
  Company Number: US-ELI_LILLY_AND_COMPANY-US201011006057

PATIENT
  Sex: Male

DRUGS (14)
  1. SIMVASTATIN [Concomitant]
  2. FORTEO [Suspect]
     Dosage: 20 UG, QD
     Route: 065
  3. ANTIHYPERTENSIVES [Concomitant]
  4. COREG [Concomitant]
  5. ZOLOFT [Concomitant]
  6. POTASSIUM CHLORIDE [Concomitant]
  7. PROTONIX [Concomitant]
  8. RAPAFLO [Concomitant]
  9. SYNTHROID [Concomitant]
  10. METFORMIN HCL [Concomitant]
  11. FORTEO [Suspect]
     Indication: OSTEOPOROSIS
     Dosage: 20 UG, DAILY (1/D)
  12. WELCHOL [Concomitant]
  13. PLAVIX [Concomitant]
  14. SPIRIVA [Concomitant]

REACTIONS (22)
  - PNEUMONIA [None]
  - MUSCLE DISORDER [None]
  - DYSPHAGIA [None]
  - BALANCE DISORDER [None]
  - LACERATION [None]
  - FLUID RETENTION [None]
  - HEART RATE INCREASED [None]
  - MALAISE [None]
  - MOVEMENT DISORDER [None]
  - DYSPNOEA [None]
  - HEAD INJURY [None]
  - HYPOTENSION [None]
  - SKIN WRINKLING [None]
  - DEHYDRATION [None]
  - TRAUMATIC INTRACRANIAL HAEMORRHAGE [None]
  - CHROMATURIA [None]
  - DECREASED APPETITE [None]
  - CARDIAC FAILURE [None]
  - PNEUMONIA ASPIRATION [None]
  - HEART RATE DECREASED [None]
  - FALL [None]
  - WEIGHT DECREASED [None]
